FAERS Safety Report 13214243 (Version 2)
Quarter: 2017Q1

REPORT INFORMATION
  Report Type: Report from Study
  Country: US (occurrence: US)
  Receive Date: 20170210
  Receipt Date: 20170330
  Transmission Date: 20170428
  Serious: Yes (Other)
  Sender: FDA-Public Use
  Company Number: US-009507513-1702USA002457

PATIENT

DRUGS (1)
  1. INTRON A [Suspect]
     Active Substance: INTERFERON ALFA-2B
     Indication: MALIGNANT MELANOMA
     Dosage: 20 MU/M2 PER DAY FOR 7 OF 5 DAYS PER WEEK FOR 4 WEEKS
     Route: 042

REACTIONS (74)
  - Presyncope [Unknown]
  - Rash [Unknown]
  - Gastrointestinal disorder [Unknown]
  - Gamma-glutamyltransferase abnormal [Unknown]
  - Hyponatraemia [Unknown]
  - Vertigo [Unknown]
  - Dyspnoea [Unknown]
  - Ventricular dysfunction [Unknown]
  - Arrhythmia supraventricular [Unknown]
  - Myocarditis [Unknown]
  - Myocardial ischaemia [Unknown]
  - Hypertriglyceridaemia [Unknown]
  - Hypokalaemia [Unknown]
  - Insomnia [Unknown]
  - Myalgia [Unknown]
  - Pneumonitis [Unknown]
  - Micturition urgency [Unknown]
  - White blood cell disorder [Unknown]
  - Chills [Unknown]
  - Alanine aminotransferase abnormal [Unknown]
  - Depression [Unknown]
  - Abdominal pain [Unknown]
  - Adverse event [Unknown]
  - Chest pain [Unknown]
  - Headache [Unknown]
  - Neutrophil count abnormal [Unknown]
  - Embolism [Unknown]
  - Decreased appetite [Unknown]
  - Dehydration [Unknown]
  - Ataxia [Unknown]
  - Depressed level of consciousness [Unknown]
  - Anxiety [Unknown]
  - Cranial nerve disorder [Unknown]
  - Nervous system disorder [Unknown]
  - Pleural effusion [Unknown]
  - Pollakiuria [Unknown]
  - General symptom [Unknown]
  - Hypertension [Unknown]
  - Constipation [Unknown]
  - Diarrhoea [Unknown]
  - Stomatitis [Unknown]
  - Blood bilirubin abnormal [Unknown]
  - Hypocalcaemia [Unknown]
  - Amnesia [Unknown]
  - Pain [Unknown]
  - Blood creatinine abnormal [Unknown]
  - Hypotension [Unknown]
  - Haematuria [Unknown]
  - Vomiting [Unknown]
  - Aspartate aminotransferase abnormal [Unknown]
  - Infection [Unknown]
  - Dizziness [Unknown]
  - Seizure [Unknown]
  - Arthralgia [Unknown]
  - Bone pain [Unknown]
  - Thrombosis [Unknown]
  - Pyrexia [Unknown]
  - Blood alkaline phosphatase abnormal [Unknown]
  - Confusional state [Unknown]
  - Hyperglycaemia [Unknown]
  - Hypersensitivity [Unknown]
  - Platelet disorder [Unknown]
  - Blood disorder [Unknown]
  - Fatigue [Unknown]
  - Skin exfoliation [Unknown]
  - Nausea [Unknown]
  - Device related infection [Unknown]
  - Neutropenic infection [Unknown]
  - Agitation [Unknown]
  - Motor neurone disease [Unknown]
  - Speech disorder [Unknown]
  - Syncope [Unknown]
  - Hypoxia [Unknown]
  - Lung infiltration [Unknown]
